FAERS Safety Report 9254444 (Version 1)
Quarter: 2013Q2

REPORT INFORMATION
  Report Type: Other
  Country: CN (occurrence: CN)
  Receive Date: 20130425
  Receipt Date: 20130425
  Transmission Date: 20140414
  Serious: Yes (Other)
  Sender: FDA-Public Use
  Company Number: CN-BRISTOL-MYERS SQUIBB COMPANY-18829465

PATIENT
  Age: 69 Year
  Sex: 0

DRUGS (3)
  1. CARBOPLATIN [Suspect]
     Indication: BREAST CANCER METASTATIC
  2. PACLITAXEL [Suspect]
     Indication: BREAST CANCER METASTATIC
  3. BEVACIZUMAB [Suspect]
     Indication: BREAST CANCER METASTATIC
     Route: 042

REACTIONS (3)
  - Neutropenia [Unknown]
  - Aspartate aminotransferase increased [Unknown]
  - Lung infection [Unknown]
